FAERS Safety Report 20691677 (Version 1)
Quarter: 2022Q2

REPORT INFORMATION
  Report Type: Spontaneous
  Country: US (occurrence: None)
  Receive Date: 20220407
  Receipt Date: 20220407
  Transmission Date: 20220720
  Serious: Yes (Hospitalization)
  Sender: FDA-Public Use
  Company Number: None

PATIENT
  Sex: Female
  Weight: 80.6 kg

DRUGS (7)
  1. CYCLOPHOSPHAMIDE [Suspect]
     Active Substance: CYCLOPHOSPHAMIDE
     Indication: Febrile neutropenia
     Dates: start: 20220118, end: 20220301
  2. CYTARABINE [Suspect]
     Active Substance: CYTARABINE
     Indication: Product used for unknown indication
     Dates: start: 20220118, end: 20220304
  3. MERCAPTOPURINE [Suspect]
     Active Substance: MERCAPTOPURINE
     Indication: Febrile neutropenia
     Dates: start: 20220118, end: 20220201
  4. METHOTREXATE [Suspect]
     Active Substance: METHOTREXATE
     Indication: Febrile neutropenia
     Dates: start: 20220118, end: 20220125
  5. PEGASPARGASE [Suspect]
     Active Substance: PEGASPARGASE
     Indication: Febrile neutropenia
     Dates: start: 20220118, end: 20220301
  6. RITUXIMAB [Suspect]
     Active Substance: RITUXIMAB
     Indication: Drug therapy
     Dates: start: 20220118, end: 20220301
  7. VINCRISTINE SULFATE [Suspect]
     Active Substance: VINCRISTINE SULFATE
     Indication: Febrile neutropenia
     Dates: start: 20220118, end: 20220301

REACTIONS (12)
  - Febrile neutropenia [None]
  - Abdominal pain [None]
  - Abdominal distension [None]
  - Hepatic enzyme increased [None]
  - Hyperbilirubinaemia [None]
  - Venoocclusive liver disease [None]
  - Cholangitis [None]
  - Mucosal inflammation [None]
  - Epistaxis [None]
  - Cholelithiasis [None]
  - Hepatic steatosis [None]
  - Pancytopenia [None]

NARRATIVE: CASE EVENT DATE: 20220308
